FAERS Safety Report 25379712 (Version 1)
Quarter: 2025Q2

REPORT INFORMATION
  Report Type: Spontaneous
  Country: US (occurrence: None)
  Receive Date: 20250529
  Receipt Date: 20250529
  Transmission Date: 20250716
  Serious: Yes (Other)
  Sender: FDA-CTU
  Company Number: None

PATIENT
  Age: 63 Year
  Sex: Male

DRUGS (1)
  1. TIMOLOL MALEATE [Suspect]
     Active Substance: TIMOLOL MALEATE
     Dosage: FREQUENCY : TWICE A DAY;?
     Route: 031
     Dates: start: 20250324, end: 20250529

REACTIONS (3)
  - Erythema [None]
  - Eye inflammation [None]
  - Periorbital swelling [None]

NARRATIVE: CASE EVENT DATE: 20250529
